FAERS Safety Report 4636687-8 (Version None)
Quarter: 2005Q2

REPORT INFORMATION
  Report Type: 
  Country: None (occurrence: None)
  Receive Date: 20050414
  Receipt Date: 20050331
  Transmission Date: 20051028
  Serious: Yes (Life-Threatening, Hospitalization)
  Sender: FDA-Public Use
  Company Number: 8009529

PATIENT
  Age: 34 Year
  Sex: Female
  Weight: 72.4 kg

DRUGS (4)
  1. KEPPRA [Suspect]
     Indication: GRAND MAL CONVULSION
     Dosage: 500 MG 2/D PO
     Route: 048
     Dates: start: 20041207, end: 20050315
  2. DEPAKENE [Concomitant]
  3. DOLIPRANE [Concomitant]
  4. ASPIRIN [Concomitant]

REACTIONS (9)
  - DIARRHOEA [None]
  - ENDOMETRIOSIS [None]
  - HEADACHE [None]
  - HEMIPLEGIA [None]
  - LOSS OF CONSCIOUSNESS [None]
  - MYALGIA [None]
  - RHABDOMYOLYSIS [None]
  - SOMNOLENCE [None]
  - THROMBOCYTOPENIA [None]
